FAERS Safety Report 14039511 (Version 2)
Quarter: 2017Q4

REPORT INFORMATION
  Report Type: Spontaneous
  Country: US (occurrence: US)
  Receive Date: 20171004
  Receipt Date: 20171110
  Transmission Date: 20180321
  Serious: Yes (Other)
  Sender: FDA-Public Use
  Company Number: US-SMITH AND NEPHEW, INC-2017SMT00548

PATIENT
  Age: 61 Year
  Sex: Female
  Weight: 81.63 kg

DRUGS (11)
  1. LOTENSIN [Concomitant]
     Active Substance: BENAZEPRIL HYDROCHLORIDE
  2. GABAPENTIN. [Concomitant]
     Active Substance: GABAPENTIN
  3. NITROGLYCERIN. [Concomitant]
     Active Substance: NITROGLYCERIN
  4. ELIQUIS [Concomitant]
     Active Substance: APIXABAN
  5. FUROSEMIDE. [Concomitant]
     Active Substance: FUROSEMIDE
  6. REGRANEX [Suspect]
     Active Substance: BECAPLERMIN
     Indication: ULCER
     Dosage: APPLY A THIN LAYER 12 HOURS ON AND 12 HOURS OFF
     Route: 061
     Dates: start: 201704, end: 201707
  7. ZANTAC [Concomitant]
     Active Substance: RANITIDINE HYDROCHLORIDE
  8. ATORVASTATIN [Concomitant]
     Active Substance: ATORVASTATIN
  9. CALCIUM [Concomitant]
     Active Substance: CALCIUM
  10. MULTIVITAMIN [Concomitant]
     Active Substance: VITAMINS
  11. METOLAZONE. [Concomitant]
     Active Substance: METOLAZONE

REACTIONS (5)
  - Gangrene [Unknown]
  - Cellulitis [Unknown]
  - Leg amputation [Recovered/Resolved with Sequelae]
  - Impaired healing [None]
  - Wound necrosis [Unknown]

NARRATIVE: CASE EVENT DATE: 201707
